FAERS Safety Report 23103972 (Version 2)
Quarter: 2023Q4

REPORT INFORMATION
  Report Type: Spontaneous
  Country: PL (occurrence: PL)
  Receive Date: 20231025
  Receipt Date: 20231031
  Transmission Date: 20240110
  Serious: Yes (Hospitalization, Other)
  Sender: FDA-Public Use
  Company Number: PL-GILEAD-2023-0647396

PATIENT
  Age: 5 Year
  Sex: Male

DRUGS (7)
  1. AMPHOTERICIN B [Suspect]
     Active Substance: AMPHOTERICIN B
     Indication: Febrile neutropenia
     Route: 065
  2. AMPHOTERICIN B [Suspect]
     Active Substance: AMPHOTERICIN B
     Route: 065
  3. AMPHOTERICIN B [Suspect]
     Active Substance: AMPHOTERICIN B
     Route: 065
  4. PIPERACILLIN AND TAZOBACTAM [Concomitant]
     Active Substance: PIPERACILLIN SODIUM\TAZOBACTAM SODIUM
     Indication: Product used for unknown indication
     Dosage: UNK UNK, UNKNOWN FREQ.
     Route: 065
  5. MEROPENEMUM [Concomitant]
     Indication: Product used for unknown indication
     Dosage: UNK UNK, UNKNOWN FREQ.
     Route: 065
  6. VANCOMYCIN [Concomitant]
     Active Substance: VANCOMYCIN
     Indication: Product used for unknown indication
     Dosage: UNK UNK, UNKNOWN FREQ.
     Route: 065
  7. VORICONAZOLE [Concomitant]
     Active Substance: VORICONAZOLE
     Indication: Product used for unknown indication
     Dosage: UNK UNK, UNKNOWN FREQ.
     Route: 065

REACTIONS (17)
  - Inflammation [Recovered/Resolved]
  - Splenic abscess [Recovered/Resolved]
  - Renal impairment [Recovered/Resolved]
  - Haemorrhage [Unknown]
  - Respiratory failure [Recovered/Resolved]
  - Pneumonitis [Unknown]
  - Haemophagocytic lymphohistiocytosis [Recovering/Resolving]
  - Skin lesion [Recovered/Resolved]
  - Abdominal pain upper [Unknown]
  - Leukocytosis [Recovering/Resolving]
  - Transaminases increased [Unknown]
  - Blood triglycerides increased [Unknown]
  - Splenic lesion [Recovered/Resolved]
  - Lung disorder [Recovered/Resolved]
  - Hepatic lesion [Recovered/Resolved]
  - Infection [Recovered/Resolved]
  - Off label use [Unknown]
